APPROVED DRUG PRODUCT: DOXYCYCLINE HYCLATE
Active Ingredient: DOXYCYCLINE HYCLATE
Strength: EQ 100MG BASE
Dosage Form/Route: TABLET;ORAL
Application: A209969 | Product #001
Applicant: AVET LIFESCIENCES LTD
Approved: Nov 9, 2018 | RLD: No | RS: No | Type: DISCN